FAERS Safety Report 5193057-4 (Version None)
Quarter: 2006Q4

REPORT INFORMATION
  Report Type: 
  Country: None (occurrence: None)
  Receive Date: 20061228
  Receipt Date: 20060327
  Transmission Date: 20070319
  Serious: No
  Sender: FDA-Public Use
  Company Number: US-GLAXOSMITHKLINE-A0599145A

PATIENT
  Sex: Male

DRUGS (6)
  1. AVODART [Suspect]
     Indication: BENIGN PROSTATIC HYPERPLASIA
     Dosage: .5MG PER DAY
     Route: 048
  2. DOXAZOSIN MESYLATE [Concomitant]
  3. GLIMEPIRIDE [Concomitant]
  4. ALTACE [Concomitant]
  5. METFORMIN HCL [Concomitant]
  6. ASPARIN [Concomitant]

REACTIONS (2)
  - BURNING SENSATION [None]
  - MICTURITION URGENCY [None]
